FAERS Safety Report 24899077 (Version 5)
Quarter: 2025Q4

REPORT INFORMATION
  Report Type: Report from Study
  Country: US (occurrence: US)
  Receive Date: 20250129
  Receipt Date: 20251003
  Transmission Date: 20260118
  Serious: Yes (Death, Hospitalization, Other)
  Sender: SUNOVION
  Company Number: US-SMPA-2025SPA000731

PATIENT
  Age: 92 Year
  Sex: Male

DRUGS (2)
  1. ORGOVYX [Suspect]
     Active Substance: RELUGOLIX
     Indication: Prostate cancer
     Dosage: 360 MG, TAKEN PRIOR TO BIOLOGICS
     Route: 048
  2. ORGOVYX [Suspect]
     Active Substance: RELUGOLIX
     Dosage: 120 MG, QD, STARTED WITH BIOLOGICS
     Route: 048
     Dates: start: 20250103

REACTIONS (7)
  - Death [Fatal]
  - Head injury [Unknown]
  - Fall [Unknown]
  - Wrist fracture [Unknown]
  - Intestinal obstruction [Unknown]
  - Memory impairment [Unknown]
  - Confusional state [Unknown]

NARRATIVE: CASE EVENT DATE: 20250731
